FAERS Safety Report 8925803 (Version 2)
Quarter: 2013Q1

REPORT INFORMATION
  Report Type: Spontaneous
  Country: US (occurrence: US)
  Receive Date: 20121126
  Receipt Date: 20130315
  Transmission Date: 20140127
  Serious: Yes (Hospitalization, Other)
  Sender: FDA-Public Use
  Company Number: US-BAYER-2012-120018

PATIENT
  Age: 24 Year
  Sex: Female
  Weight: 59 kg

DRUGS (7)
  1. YASMIN [Suspect]
     Indication: OVARIAN CYST
     Dosage: UNK
     Dates: start: 200212, end: 200512
  2. YASMIN [Suspect]
     Indication: DYSFUNCTIONAL UTERINE BLEEDING
  3. YASMIN [Suspect]
     Indication: DYSMENORRHOEA
  4. YASMIN [Suspect]
     Indication: CONTRACEPTION
  5. OCELLA [Suspect]
     Indication: OVARIAN CYST
     Dosage: UNK
     Dates: start: 200212, end: 200512
  6. AUGMENTIN [Concomitant]
     Dosage: AS NECESSARY
  7. IBUPROFEN [IBUPROFEN] [Concomitant]
     Dosage: AS NECESSARY

REACTIONS (9)
  - Gallbladder disorder [None]
  - Pain [None]
  - Injury [None]
  - General physical health deterioration [None]
  - Anxiety [None]
  - Emotional distress [None]
  - Pain [None]
  - Off label use [None]
  - Cholecystitis [None]
